FAERS Safety Report 11074080 (Version 1)
Quarter: 2015Q2

REPORT INFORMATION
  Report Type: Spontaneous
  Country: US (occurrence: None)
  Receive Date: 20150428
  Receipt Date: 20150428
  Transmission Date: 20150821
  Serious: Yes (Death, Hospitalization)
  Sender: FDA-Public Use
  Company Number: None

PATIENT
  Age: 57 Year
  Sex: Female
  Weight: 48.2 kg

DRUGS (3)
  1. TAXOL [Suspect]
     Active Substance: PACLITAXEL
     Dates: end: 20150304
  2. METFORMIN HYDROCHLORIDE. [Suspect]
     Active Substance: METFORMIN HYDROCHLORIDE
     Dates: end: 20150317
  3. CARBOPLATIN. [Suspect]
     Active Substance: CARBOPLATIN
     Dates: end: 20150304

REACTIONS (15)
  - Leukocytosis [None]
  - Dyspnoea [None]
  - Pneumonia [None]
  - Aspiration [None]
  - Malaise [None]
  - Hypophagia [None]
  - Pleural effusion [None]
  - Personality change [None]
  - Hypoxia [None]
  - Acidosis [None]
  - Fatigue [None]
  - Endometrial adenocarcinoma [None]
  - Mental status changes [None]
  - Performance status decreased [None]
  - Malignant neoplasm progression [None]

NARRATIVE: CASE EVENT DATE: 20150414
